FAERS Safety Report 15881998 (Version 1)
Quarter: 2019Q1

REPORT INFORMATION
  Report Type: Report from Study
  Country: DE (occurrence: DE)
  Receive Date: 20190128
  Receipt Date: 20190128
  Transmission Date: 20190417
  Serious: Yes (Hospitalization)
  Sender: FDA-Public Use
  Company Number: DE-PFIZER INC-2018432999

PATIENT
  Age: 64 Year
  Sex: Male

DRUGS (41)
  1. LANTAREL [Suspect]
     Active Substance: METHOTREXATE SODIUM
     Dosage: 20 MG, WEEKLY
     Dates: start: 20171211
  2. LANTAREL [Suspect]
     Active Substance: METHOTREXATE SODIUM
     Dosage: 15 UNK, UNK
     Dates: start: 20110118
  3. LANTAREL [Suspect]
     Active Substance: METHOTREXATE SODIUM
     Dosage: 22.5 UNK, UNK
     Dates: start: 20111108
  4. LANTAREL [Suspect]
     Active Substance: METHOTREXATE SODIUM
     Dosage: 22.5 UNK, UNK
     Dates: start: 20130603
  5. LANTAREL [Suspect]
     Active Substance: METHOTREXATE SODIUM
     Dosage: 22.5 UNK, UNK
     Dates: start: 20131203
  6. LANTAREL [Suspect]
     Active Substance: METHOTREXATE SODIUM
     Dosage: 22.5 UNK, UNK
     Dates: start: 20150420
  7. HYDROXYCHLOROQUINE [Suspect]
     Active Substance: HYDROXYCHLOROQUINE
     Dosage: 200 MG, UNK
     Dates: start: 20150420
  8. HYDROXYCHLOROQUINE [Suspect]
     Active Substance: HYDROXYCHLOROQUINE
     Dosage: 200 MG, UNK
     Dates: start: 20140411
  9. LANTAREL [Suspect]
     Active Substance: METHOTREXATE SODIUM
     Dosage: 22.5 UNK, UNK
     Dates: start: 20110608
  10. LANTAREL [Suspect]
     Active Substance: METHOTREXATE SODIUM
     Dosage: 22.5 UNK, UNK
     Dates: start: 20140411
  11. SULFASALAZINE. [Suspect]
     Active Substance: SULFASALAZINE
     Dosage: 2000 MG, UNK
     Dates: start: 20140411
  12. LANTAREL [Suspect]
     Active Substance: METHOTREXATE SODIUM
     Dosage: 22.5 UNK, UNK
     Dates: start: 20090922
  13. LANTAREL [Suspect]
     Active Substance: METHOTREXATE SODIUM
     Dosage: 22.5 UNK, UNK
     Dates: start: 20121106
  14. LEFLUNOMID [Suspect]
     Active Substance: LEFLUNOMIDE
     Dosage: 10 MG, DAILY
     Dates: start: 20171211
  15. HYDROXYCHLOROQUINE [Suspect]
     Active Substance: HYDROXYCHLOROQUINE
     Dosage: 200 MG, UNK
     Dates: start: 20121106
  16. LANTAREL [Suspect]
     Active Substance: METHOTREXATE SODIUM
     Dosage: 22.5 MG, UNK
     Dates: start: 20090526
  17. LANTAREL [Suspect]
     Active Substance: METHOTREXATE SODIUM
     Dosage: 22.5 UNK, UNK
     Dates: start: 20091210
  18. LANTAREL [Suspect]
     Active Substance: METHOTREXATE SODIUM
     Dosage: 22.5 UNK, UNK
     Dates: start: 20120509
  19. LANTAREL [Suspect]
     Active Substance: METHOTREXATE SODIUM
     Dosage: 22.5 UNK, UNK
     Dates: start: 20161107
  20. LEFLUNOMID [Suspect]
     Active Substance: LEFLUNOMIDE
     Dosage: UNK
     Dates: start: 20170511
  21. HYDROXYCHLOROQUINE [Suspect]
     Active Substance: HYDROXYCHLOROQUINE
     Dosage: 200 MG, UNK
     Dates: start: 20151014
  22. HYDROXYCHLOROQUINE [Suspect]
     Active Substance: HYDROXYCHLOROQUINE
     Dosage: 400 MG, UNK
     Dates: start: 20090526
  23. NO SUBJECT DRUG [Suspect]
     Active Substance: UNSPECIFIED INGREDIENT
     Dosage: NO DOSE GIVEN
  24. LANTAREL [Suspect]
     Active Substance: METHOTREXATE SODIUM
     Dosage: 22.5 UNK, UNK
     Dates: start: 20170511
  25. HYDROXYCHLOROQUINE [Suspect]
     Active Substance: HYDROXYCHLOROQUINE
     Dosage: 200 MG, UNK
     Dates: start: 20161107
  26. HYDROXYCHLOROQUINE [Suspect]
     Active Substance: HYDROXYCHLOROQUINE
     Dosage: 200 MG, UNK
     Dates: start: 20131203
  27. HYDROXYCHLOROQUINE [Suspect]
     Active Substance: HYDROXYCHLOROQUINE
     Dosage: 200 MG, UNK
     Dates: start: 20111108
  28. HYDROXYCHLOROQUINE [Suspect]
     Active Substance: HYDROXYCHLOROQUINE
     Dosage: 200 MG, UNK
     Dates: start: 20091210
  29. HYDROXYCHLOROQUINE [Suspect]
     Active Substance: HYDROXYCHLOROQUINE
     Dosage: 200 MG, UNK
     Dates: start: 20170511
  30. HYDROXYCHLOROQUINE [Suspect]
     Active Substance: HYDROXYCHLOROQUINE
     Dosage: 200 MG, UNK
     Dates: start: 20151014
  31. HYDROXYCHLOROQUINE [Suspect]
     Active Substance: HYDROXYCHLOROQUINE
     Dosage: 200 MG, UNK
     Dates: start: 20130603
  32. HYDROXYCHLOROQUINE [Suspect]
     Active Substance: HYDROXYCHLOROQUINE
     Dosage: 200 MG, UNK
     Dates: start: 20120509
  33. HYDROXYCHLOROQUINE [Suspect]
     Active Substance: HYDROXYCHLOROQUINE
     Dosage: 200 MG, UNK
     Dates: start: 20100510
  34. HYDROXYCHLOROQUINE [Suspect]
     Active Substance: HYDROXYCHLOROQUINE
     Dosage: 200 MG, UNK
     Dates: start: 20090922
  35. LANTAREL [Suspect]
     Active Substance: METHOTREXATE SODIUM
     Dosage: 22.5 UNK, UNK
     Dates: start: 20100510
  36. LANTAREL [Suspect]
     Active Substance: METHOTREXATE SODIUM
     Dosage: 22.5 UNK, UNK
     Dates: start: 20160414
  37. HYDROXYCHLOROQUINE [Suspect]
     Active Substance: HYDROXYCHLOROQUINE
     Dosage: 200 MG, UNK
     Dates: start: 20160414
  38. HYDROXYCHLOROQUINE [Suspect]
     Active Substance: HYDROXYCHLOROQUINE
     Dosage: 200 MG, UNK
     Dates: start: 20110118
  39. LANTAREL [Suspect]
     Active Substance: METHOTREXATE SODIUM
     Dosage: 22.5 UNK, UNK
     Dates: start: 20151014
  40. SULFASALAZINE. [Suspect]
     Active Substance: SULFASALAZINE
     Dosage: 2000 MG, UNK
     Dates: start: 20150420
  41. HYDROXYCHLOROQUINE [Suspect]
     Active Substance: HYDROXYCHLOROQUINE
     Dosage: 200 MG, UNK
     Dates: start: 20110608

REACTIONS (1)
  - Empyema [Recovered/Resolved]

NARRATIVE: CASE EVENT DATE: 20170506
